FAERS Safety Report 23217633 (Version 2)
Quarter: 2023Q4

REPORT INFORMATION
  Report Type: Spontaneous
  Country: CN (occurrence: CN)
  Receive Date: 20231122
  Receipt Date: 20231128
  Transmission Date: 20240109
  Serious: Yes (Other)
  Sender: FDA-Public Use
  Company Number: CN-PFIZER INC-PV202300188657

PATIENT
  Age: 68 Year
  Sex: Male
  Weight: 82 kg

DRUGS (5)
  1. IRINOTECAN HYDROCHLORIDE [Suspect]
     Active Substance: IRINOTECAN HYDROCHLORIDE
     Indication: Lung neoplasm malignant
     Dosage: 100 MG
     Route: 041
     Dates: start: 20231020, end: 20231027
  2. PACLITAXEL [Suspect]
     Active Substance: PACLITAXEL
     Indication: Lung neoplasm malignant
     Dosage: 150 MG
     Dates: start: 20231020, end: 20231027
  3. LOBAPLATIN [Suspect]
     Active Substance: LOBAPLATIN
     Indication: Lung neoplasm malignant
     Dosage: 10 MG
     Dates: start: 20231020, end: 20231027
  4. ATEZOLIZUMAB [Suspect]
     Active Substance: ATEZOLIZUMAB
     Indication: Lung neoplasm malignant
     Dosage: 1200 MG
     Dates: start: 20231020, end: 20231020
  5. CATEQUENTINIB [Suspect]
     Active Substance: CATEQUENTINIB
     Indication: Lung neoplasm malignant
     Dosage: 12 MG, DAILY (EVERY 21 D REGIMEN)
     Route: 048
     Dates: start: 20231019, end: 20231101

REACTIONS (4)
  - Abdominal pain [Unknown]
  - Diarrhoea [Recovering/Resolving]
  - Haematochezia [Unknown]
  - Off label use [Unknown]

NARRATIVE: CASE EVENT DATE: 20231020
